FAERS Safety Report 4480435-1 (Version None)
Quarter: 2004Q4

REPORT INFORMATION
  Report Type: 
  Country: None (occurrence: None)
  Receive Date: 20041018
  Receipt Date: 20041008
  Transmission Date: 20050328
  Serious: Yes (Other)
  Sender: FDA-Public Use
  Company Number: EM2004-0445

PATIENT
  Age: 45 Year
  Sex: Male

DRUGS (1)
  1. PROLEUKIN [Suspect]
     Indication: RENAL CELL CARCINOMA STAGE UNSPECIFIED
     Dosage: 52 MIU, Q8HX12/OFF 16 DAYS, INTRAVENOUS
     Route: 042
     Dates: start: 20030801, end: 20040101

REACTIONS (13)
  - ANOREXIA [None]
  - ASTHENIA [None]
  - CHILLS [None]
  - CIRCULATORY COLLAPSE [None]
  - COUGH [None]
  - DIARRHOEA [None]
  - EATING DISORDER [None]
  - EYE HAEMORRHAGE [None]
  - FLUID RETENTION [None]
  - HYPERHIDROSIS [None]
  - NAUSEA [None]
  - PYREXIA [None]
  - VOMITING [None]
